FAERS Safety Report 8954257 (Version 1)
Quarter: 2012Q4

REPORT INFORMATION
  Report Type: 
  Country: MX (occurrence: MX)
  Receive Date: 20121207
  Receipt Date: 20121207
  Transmission Date: 20130627
  Serious: Yes (Other)
  Sender: FDA-Public Use
  Company Number: PHHY2012MX112775

PATIENT
  Age: 54 Year
  Sex: Female

DRUGS (1)
  1. EXELON PATCH [Suspect]
     Indication: DEMENTIA ALZHEIMER^S TYPE
     Dosage: 9.5 mg, daily
     Route: 062

REACTIONS (2)
  - Multiple sclerosis [Not Recovered/Not Resolved]
  - Malaise [Not Recovered/Not Resolved]
